FAERS Safety Report 9364881 (Version 2)
Quarter: 2013Q3

REPORT INFORMATION
  Report Type: Spontaneous
  Country: FR (occurrence: FR)
  Receive Date: 20130624
  Receipt Date: 20130725
  Transmission Date: 20140515
  Serious: Yes (Other)
  Sender: FDA-Public Use
  Company Number: FR-009507513-1306FRA007126

PATIENT
  Sex: Female

DRUGS (14)
  1. SINGULAIR [Suspect]
     Dosage: UNK
     Route: 048
  2. SERETIDE [Interacting]
     Dosage: UNK
     Route: 055
     Dates: start: 2008, end: 20130423
  3. TAHOR [Interacting]
     Dosage: UNK
     Route: 048
  4. PLAVIX [Interacting]
     Dosage: UNK
     Route: 048
  5. SPIRIVA [Interacting]
     Dosage: UNK
     Route: 055
  6. ISOPTINE [Interacting]
     Dosage: UNK
     Route: 048
  7. ONGLYZA [Interacting]
     Dosage: UNK
     Route: 048
     Dates: start: 201301, end: 20130423
  8. OGAST [Interacting]
     Dosage: UNK
     Route: 048
  9. INNOVAIR [Concomitant]
     Dosage: UNK
     Route: 045
     Dates: start: 20130423
  10. COAPROVEL [Concomitant]
     Dosage: UNK
     Route: 048
  11. LASILIX [Concomitant]
     Dosage: UNK
     Route: 048
  12. METFORMIN [Concomitant]
     Dosage: UNK
     Route: 048
  13. VENTOLINE (ALBUTEROL SULFATE) [Concomitant]
     Dosage: UNK
     Route: 045
  14. CORVASAL (LINSIDOMINE HYDROCHLORIDE) [Concomitant]
     Dosage: UNK
     Route: 048

REACTIONS (1)
  - Hypogammaglobulinaemia [Recovered/Resolved]
